FAERS Safety Report 20192690 (Version 1)
Quarter: 2021Q4

REPORT INFORMATION
  Report Type: Report from Study
  Country: AT (occurrence: AT)
  Receive Date: 20211216
  Receipt Date: 20211216
  Transmission Date: 20220303
  Serious: Yes (Hospitalization)
  Sender: FDA-Public Use
  Company Number: None

PATIENT
  Sex: Male

DRUGS (11)
  1. PIOGLITAZONE HYDROCHLORIDE [Suspect]
     Active Substance: PIOGLITAZONE HYDROCHLORIDE
  2. MEMANTINE [Suspect]
     Active Substance: MEMANTINE
  3. GLICLAZIDE [Suspect]
     Active Substance: GLICLAZIDE
  4. LEVOMEPROMAZINE [Suspect]
     Active Substance: LEVOMEPROMAZINE
  5. SOLIFENACIN\TAMSULOSIN [Suspect]
     Active Substance: SOLIFENACIN\TAMSULOSIN
  6. FOLIC ACID [Suspect]
     Active Substance: FOLIC ACID
  7. SEROQUEL [Suspect]
     Active Substance: QUETIAPINE FUMARATE
     Indication: Mixed dementia
  8. ALOGLIPTIN BENZOATE\METFORMIN HYDROCHLORIDE [Suspect]
     Active Substance: ALOGLIPTIN BENZOATE\METFORMIN HYDROCHLORIDE
  9. CYANOCOBALAMIN\PYRIDOXAMINE HYDROCHLORIDE\THIAMINE HYDROCHLORIDE [Suspect]
     Active Substance: CYANOCOBALAMIN\PYRIDOXAMINE HYDROCHLORIDE\THIAMINE HYDROCHLORIDE
  10. CLOPIDOGREL BISULFATE [Suspect]
     Active Substance: CLOPIDOGREL BISULFATE
  11. VALSARTAN [Suspect]
     Active Substance: VALSARTAN

REACTIONS (1)
  - Fall [Unknown]
